FAERS Safety Report 5253578-2 (Version None)
Quarter: 2007Q1

REPORT INFORMATION
  Report Type: 
  Country: None (occurrence: None)
  Receive Date: 20070301
  Receipt Date: 20070219
  Transmission Date: 20070707
  Serious: Yes (Other)
  Sender: FDA-Public Use
  Company Number: CH-PFIZER INC-2006088387

PATIENT
  Sex: Male

DRUGS (1)
  1. ZITHROMAX (SINGLE DOSE) [Suspect]
     Indication: INFECTION
     Route: 048
     Dates: start: 20060717, end: 20060717

REACTIONS (4)
  - DRUG EXPOSURE DURING PREGNANCY [None]
  - INFECTION [None]
  - JAUNDICE [None]
  - OXYGEN SATURATION DECREASED [None]
